FAERS Safety Report 24351270 (Version 1)
Quarter: 2024Q3

REPORT INFORMATION
  Report Type: Report from Study
  Country: EG (occurrence: EG)
  Receive Date: 20240923
  Receipt Date: 20240923
  Transmission Date: 20241017
  Serious: No
  Sender: ROCHE
  Company Number: EG-ROCHE-2886822

PATIENT
  Age: 46 Year
  Sex: Female

DRUGS (5)
  1. HERCEPTIN [Suspect]
     Active Substance: TRASTUZUMAB
     Indication: Breast cancer metastatic
     Dosage: NUMBER OF CYCLES PER REGIMEN: 6
     Route: 041
     Dates: start: 20210206, end: 20211014
  2. TAXOTERE [Suspect]
     Active Substance: DOCETAXEL
     Indication: Breast cancer metastatic
     Route: 042
     Dates: start: 20210206, end: 20210426
  3. PARAPLATIN [Suspect]
     Active Substance: CARBOPLATIN
     Indication: Breast cancer metastatic
     Dosage: 5.00 AUC
     Route: 042
     Dates: start: 20210206, end: 20211014
  4. CYTOXAN [Suspect]
     Active Substance: CYCLOPHOSPHAMIDE
     Indication: Breast cancer metastatic
     Route: 042
     Dates: start: 20201026, end: 20210112
  5. ELLENCE [Suspect]
     Active Substance: EPIRUBICIN HYDROCHLORIDE
     Indication: Breast cancer metastatic
     Route: 042
     Dates: start: 20201026, end: 20210112

REACTIONS (4)
  - Decreased appetite [Recovered/Resolved]
  - Tinnitus [Recovered/Resolved]
  - Breast discharge [Recovered/Resolved]
  - Skin discolouration [Recovered/Resolved]

NARRATIVE: CASE EVENT DATE: 20210413
